FAERS Safety Report 24368684 (Version 1)
Quarter: 2024Q3

REPORT INFORMATION
  Report Type: Report from Study
  Country: BR (occurrence: BR)
  Receive Date: 20240926
  Receipt Date: 20240926
  Transmission Date: 20241017
  Serious: Yes (Other)
  Sender: JOHNSON AND JOHNSON
  Company Number: BR-JNJFOC-20240843199

PATIENT
  Age: 56 Year
  Sex: Female
  Weight: 59 kg

DRUGS (9)
  1. SIMPONI [Suspect]
     Active Substance: GOLIMUMAB
     Indication: Psoriatic arthropathy
     Dosage: LAST APPLICATION WAS ON 26-JUL-2024
     Route: 058
     Dates: start: 20240726
  2. SIMPONI [Suspect]
     Active Substance: GOLIMUMAB
  3. ADALIMUMAB [Suspect]
     Active Substance: ADALIMUMAB
     Indication: Product used for unknown indication
     Route: 065
     Dates: start: 202405
  4. FLUCONAZOLE [Suspect]
     Active Substance: FLUCONAZOLE
     Indication: Fungal infection
     Route: 065
  5. FLUCONAZOLE [Suspect]
     Active Substance: FLUCONAZOLE
     Route: 065
     Dates: start: 20240902, end: 20240911
  6. METOPROLOL SUCCINATE [Concomitant]
     Active Substance: METOPROLOL SUCCINATE
  7. FERROUS SULFATE [Concomitant]
     Active Substance: FERROUS SULFATE
  8. CARBOHYDRATES\FATTY ACIDS\MINERALS\PROTEIN\VITAMINS [Concomitant]
     Active Substance: CARBOHYDRATES\FATTY ACIDS\MINERALS\PROTEIN\VITAMINS
  9. CALCIUM [Concomitant]
     Active Substance: CALCIUM

REACTIONS (20)
  - Gastrointestinal fungal infection [Unknown]
  - Inflammatory bowel disease [Unknown]
  - Immunosuppression [Unknown]
  - Adverse drug reaction [Unknown]
  - Food allergy [Unknown]
  - Eating disorder [Not Recovered/Not Resolved]
  - Chest pain [Unknown]
  - Osteopenia [Unknown]
  - Vulvovaginal candidiasis [Unknown]
  - Urinary tract infection bacterial [Unknown]
  - Drug resistance [Unknown]
  - Application site erythema [Unknown]
  - Mycotic allergy [Not Recovered/Not Resolved]
  - Blood cholesterol increased [Recovering/Resolving]
  - Pain in jaw [Unknown]
  - Memory impairment [Unknown]
  - Confusional state [Unknown]
  - Osteoarthritis [Recovering/Resolving]
  - Inappropriate schedule of product administration [Unknown]
  - Drug ineffective [Unknown]

NARRATIVE: CASE EVENT DATE: 20240101
